FAERS Safety Report 18659700 (Version 2)
Quarter: 2021Q2

REPORT INFORMATION
  Report Type: Spontaneous
  Country: US (occurrence: US)
  Receive Date: 20201223
  Receipt Date: 20210623
  Transmission Date: 20210717
  Serious: Yes (Other)
  Sender: FDA-Public Use
  Company Number: US-HORIZON-2020HZN02529

PATIENT
  Sex: Female

DRUGS (4)
  1. DUEXIS [Suspect]
     Active Substance: FAMOTIDINE\IBUPROFEN
     Indication: INFLAMMATION
  2. MOBIC [Concomitant]
     Active Substance: MELOXICAM
  3. DUEXIS [Suspect]
     Active Substance: FAMOTIDINE\IBUPROFEN
     Indication: PROCEDURAL PAIN
     Dosage: 1 DOSAGE FORM, TID
  4. XANAX [Concomitant]
     Active Substance: ALPRAZOLAM
     Dosage: .5 MG, UNK

REACTIONS (3)
  - Rectal haemorrhage [Recovered/Resolved]
  - Expired product administered [Not Recovered/Not Resolved]
  - Off label use [Not Recovered/Not Resolved]
